FAERS Safety Report 10133558 (Version 1)
Quarter: 2014Q2

REPORT INFORMATION
  Report Type: Spontaneous
  Country: US (occurrence: US)
  Receive Date: 20140428
  Receipt Date: 20140428
  Transmission Date: 20141212
  Serious: Yes (Hospitalization)
  Sender: FDA-Public Use
  Company Number: US-GLAXOSMITHKLINE-A1070324A

PATIENT
  Age: 48 Year
  Sex: Female

DRUGS (12)
  1. ADVAIR [Suspect]
     Indication: ASTHMA
     Dosage: 1PUFF PER DAY
     Route: 055
  2. LISINOPRIL [Concomitant]
  3. METFORMIN [Concomitant]
  4. ASPIRIN [Concomitant]
  5. FUROSEMIDE [Concomitant]
  6. CARVEDILOL [Concomitant]
  7. ZOLOFT [Concomitant]
  8. PRAVASTATIN [Concomitant]
  9. KEPPRA [Concomitant]
  10. VENTOLIN HFA [Concomitant]
  11. INSULIN [Concomitant]
  12. HEART MEDICATION [Concomitant]

REACTIONS (5)
  - Cerebrovascular accident [Unknown]
  - Acute respiratory failure [Unknown]
  - Aphasia [Unknown]
  - Convulsion [Unknown]
  - Dyspnoea [Unknown]
